FAERS Safety Report 22634238 (Version 2)
Quarter: 2023Q2

REPORT INFORMATION
  Report Type: Spontaneous
  Country: US (occurrence: US)
  Receive Date: 20230623
  Receipt Date: 20230630
  Transmission Date: 20230721
  Serious: No
  Sender: FDA-Public Use
  Company Number: US-PFIZER INC-PV202300108016

PATIENT
  Age: 39 Year
  Sex: Female

DRUGS (1)
  1. NURTEC ODT [Suspect]
     Active Substance: RIMEGEPANT SULFATE
     Indication: Migraine
     Dosage: DISSOLVE 75MG IN MOUTH DAILY AS NEEDED. MAY TAKE ANOTHER TAB IN 2HRS IF PAIN PERSISTS. DO NOT EXCEED
     Route: 048

REACTIONS (2)
  - Headache [Unknown]
  - Off label use [Unknown]
